FAERS Safety Report 13883059 (Version 2)
Quarter: 2017Q4

REPORT INFORMATION
  Report Type: Spontaneous
  Country: US (occurrence: US)
  Receive Date: 20170818
  Receipt Date: 20171016
  Transmission Date: 20180320
  Serious: Yes (Other)
  Sender: FDA-Public Use
  Company Number: US-BAYER-2017-157750

PATIENT
  Age: 49 Year
  Sex: Female

DRUGS (1)
  1. STIVARGA [Suspect]
     Active Substance: REGORAFENIB
     Indication: COLORECTAL CANCER METASTATIC
     Dosage: 160 MG, QD (TAKE WITH A LOW FAT MEAL. SWALLOW TABLETS WHOLE) FOR 21 DAYS THEN 7 DAYS OFF
     Route: 048
     Dates: start: 20170813, end: 20170918

REACTIONS (14)
  - Carcinoembryonic antigen increased [None]
  - Dizziness [None]
  - Fatigue [Recovered/Resolved]
  - Nail discolouration [None]
  - Fall [None]
  - Increased tendency to bruise [Not Recovered/Not Resolved]
  - Stomatitis [Not Recovered/Not Resolved]
  - Back pain [None]
  - Urinary incontinence [None]
  - Pain [Not Recovered/Not Resolved]
  - Nausea [Recovered/Resolved]
  - Blood lactate dehydrogenase abnormal [None]
  - Blood alkaline phosphatase abnormal [None]
  - Pyrexia [None]

NARRATIVE: CASE EVENT DATE: 20170813
